FAERS Safety Report 5158080-4 (Version None)
Quarter: 2006Q4

REPORT INFORMATION
  Report Type: 
  Country: None (occurrence: None)
  Receive Date: 20061116
  Receipt Date: 20061106
  Transmission Date: 20070319
  Serious: Yes (Hospitalization, Other)
  Sender: FDA-Public Use
  Company Number: 2006104457

PATIENT
  Age: 63 Year
  Sex: Female
  Weight: 68 kg

DRUGS (12)
  1. SULFASALAZINE [Suspect]
     Indication: RHEUMATOID ARTHRITIS
     Dosage: 1000 MG ( 500 MG, 2 IN 1 D), ORAL
     Route: 048
     Dates: start: 20060626, end: 20060804
  2. METHOTREXATE [Suspect]
     Indication: RHEUMATOID ARTHRITIS
     Dosage: 5 MG, (2.5 MG, 2 IN 1 WK), ORAL
     Route: 048
     Dates: start: 20040704, end: 20060801
  3. PREDNISOLONE [Suspect]
     Indication: RHEUMATOID ARTHRITIS
     Dosage: 10 MG (5 MG, 2 IN 1 D), ORAL
     Route: 048
     Dates: start: 20031001, end: 20060805
  4. VITAMIN E [Concomitant]
  5. MOBIC [Concomitant]
  6. FOLIC ACID [Concomitant]
  7. CIMETIDINE [Concomitant]
  8. AZULENE [Concomitant]
  9. THIOLA (TIOPRONIN) [Concomitant]
  10. FOLIC ACID [Concomitant]
  11. NEUROVITAN (CYANOCOBALAMIN, OCTOTIAMINE, PYRIDOXINE HYDROCHLORIDE, RIB [Concomitant]
  12. CINAL (ASCORBIC ACID, CALCIUM PANTOTHENATE) [Concomitant]

REACTIONS (1)
  - AGRANULOCYTOSIS [None]
